FAERS Safety Report 22061248 (Version 2)
Quarter: 2023Q2

REPORT INFORMATION
  Report Type: Report from Study
  Country: US (occurrence: US)
  Receive Date: 20230303
  Receipt Date: 20230406
  Transmission Date: 20230721
  Serious: Yes (Hospitalization)
  Sender: FDA-Public Use
  Company Number: US-G1 THERAPEUTICS-2023G1US0000045

PATIENT

DRUGS (1)
  1. COSELA [Suspect]
     Active Substance: TRILACICLIB DIHYDROCHLORIDE
     Indication: Myelosuppression
     Dosage: UNK
     Route: 065

REACTIONS (6)
  - Myelosuppression [Unknown]
  - White blood cell count decreased [Unknown]
  - Platelet count decreased [Unknown]
  - Infection [Unknown]
  - Anaemia [Unknown]
  - Performance status decreased [Unknown]
